FAERS Safety Report 25527916 (Version 2)
Quarter: 2025Q3

REPORT INFORMATION
  Report Type: Spontaneous
  Country: CN (occurrence: CN)
  Receive Date: 20250708
  Receipt Date: 20250809
  Transmission Date: 20251021
  Serious: Yes (Other)
  Sender: ALEXION PHARMACEUTICALS
  Company Number: CN-ASTRAZENECA-202507CHN000620CN

PATIENT
  Age: 65 Year
  Sex: Female

DRUGS (1)
  1. SYMBICORT [Suspect]
     Active Substance: BUDESONIDE\FORMOTEROL FUMARATE DIHYDRATE
     Indication: Asthma
     Dosage: 160 MICROGRAM, BID
     Dates: start: 20250523, end: 20250525

REACTIONS (4)
  - Asphyxia [Unknown]
  - Mouth ulceration [Recovering/Resolving]
  - Cough [Unknown]
  - Dyspnoea [Unknown]

NARRATIVE: CASE EVENT DATE: 20250530
